FAERS Safety Report 21002405 (Version 4)
Quarter: 2022Q3

REPORT INFORMATION
  Report Type: Other
  Country: JP (occurrence: JP)
  Receive Date: 20220624
  Receipt Date: 20220927
  Transmission Date: 20221026
  Serious: Yes (Hospitalization, Other)
  Sender: FDA-Public Use
  Company Number: JP-CHUGAI-2022007275

PATIENT
  Age: 49 Year
  Sex: Male
  Weight: 62 kg

DRUGS (9)
  1. ATEZOLIZUMAB [Suspect]
     Active Substance: ATEZOLIZUMAB
     Indication: Small cell lung cancer extensive stage
     Dosage: 1200 MILLIGRAM, ONCE/3WEEKS
     Route: 041
     Dates: start: 20211129, end: 20211222
  2. ATEZOLIZUMAB [Suspect]
     Active Substance: ATEZOLIZUMAB
     Dosage: 1200 MILLIGRAM, ONCE/3WEEKS
     Route: 041
     Dates: start: 20220119, end: 2022
  3. ATEZOLIZUMAB [Suspect]
     Active Substance: ATEZOLIZUMAB
     Dosage: 1200 MILLIGRAM
     Route: 041
     Dates: end: 20220511
  4. CARBOPLATIN [Concomitant]
     Active Substance: CARBOPLATIN
     Indication: Small cell lung cancer extensive stage
     Dosage: 630 MILLIGRAM, ONCE/3WEEKS
     Route: 041
     Dates: start: 20211129, end: 20211222
  5. CARBOPLATIN [Concomitant]
     Active Substance: CARBOPLATIN
     Dosage: 630 MILLIGRAM, ONCE/3WEEKS
     Route: 041
     Dates: start: 20220119, end: 20220209
  6. ETOPOSIDE [Concomitant]
     Active Substance: ETOPOSIDE
     Indication: Small cell lung cancer extensive stage
     Dosage: 180 MILLIGRAM
     Route: 041
     Dates: start: 20211129
  7. ETOPOSIDE [Concomitant]
     Active Substance: ETOPOSIDE
     Dosage: 140 MILLIGRAM
     Route: 041
     Dates: start: 20211222, end: 20211224
  8. ETOPOSIDE [Concomitant]
     Active Substance: ETOPOSIDE
     Dosage: 140 MILLIGRAM
     Route: 041
     Dates: start: 20220119, end: 20220121
  9. ETOPOSIDE [Concomitant]
     Active Substance: ETOPOSIDE
     Dosage: 140 MILLIGRAM
     Route: 041
     Dates: start: 20220209, end: 20220212

REACTIONS (4)
  - Febrile neutropenia [Recovered/Resolved]
  - Neutropenia [Recovered/Resolved]
  - Thrombocytopenia [Recovering/Resolving]
  - Anaemia [Recovering/Resolving]

NARRATIVE: CASE EVENT DATE: 20211201
